FAERS Safety Report 9789330 (Version 2)
Quarter: 2014Q1

REPORT INFORMATION
  Report Type: Report from Study
  Country: US (occurrence: US)
  Receive Date: 20131231
  Receipt Date: 20140213
  Transmission Date: 20141002
  Serious: Yes (Other)
  Sender: FDA-Public Use
  Company Number: US-ROCHE-1324097

PATIENT
  Sex: Female
  Weight: 38.82 kg

DRUGS (1)
  1. NUTROPIN AQ [Suspect]
     Indication: GROWTH RETARDATION
     Dosage: NIGHTLY
     Route: 058

REACTIONS (2)
  - Sinusitis [Unknown]
  - Delayed puberty [Unknown]
